FAERS Safety Report 25801822 (Version 1)
Quarter: 2025Q3

REPORT INFORMATION
  Report Type: Spontaneous
  Country: MA (occurrence: MA)
  Receive Date: 20250915
  Receipt Date: 20250915
  Transmission Date: 20251021
  Serious: Yes (Other)
  Sender: MACLEODS
  Company Number: MA-MLMSERVICE-20250829-PI627079-00130-1

PATIENT

DRUGS (2)
  1. DOLUTEGRAVIR [Suspect]
     Active Substance: DOLUTEGRAVIR
     Indication: HIV infection CDC category B
     Route: 065
     Dates: start: 2024
  2. LAMIVUDINE\TENOFOVIR [Suspect]
     Active Substance: LAMIVUDINE\TENOFOVIR
     Indication: HIV infection CDC category B
     Route: 065
     Dates: start: 2024

REACTIONS (2)
  - Cutaneous leishmaniasis [Unknown]
  - Immune reconstitution inflammatory syndrome [Unknown]
